FAERS Safety Report 15258695 (Version 1)
Quarter: 2018Q3

REPORT INFORMATION
  Report Type: Report from Study
  Country: DE (occurrence: DE)
  Receive Date: 20180809
  Receipt Date: 20180809
  Transmission Date: 20181010
  Serious: Yes (Other)
  Sender: FDA-Public Use
  Company Number: DE-TEVA-2018-DE-934255

PATIENT
  Sex: Female

DRUGS (11)
  1. TASIGNA [Suspect]
     Active Substance: NILOTINIB
     Dosage: 300 MILLIGRAM DAILY; 300 MG, QD
     Route: 048
     Dates: start: 20150611, end: 20160317
  2. BISOPROLOL COMP [Concomitant]
     Indication: PRODUCT USED FOR UNKNOWN INDICATION
     Dosage: 5 MG, UNK
     Route: 065
  3. TASIGNA [Suspect]
     Active Substance: NILOTINIB
     Dosage: 300 MILLIGRAM DAILY;
     Route: 048
     Dates: start: 20150228, end: 20150305
  4. TASIGNA [Suspect]
     Active Substance: NILOTINIB
     Dosage: 600 MILLIGRAM DAILY;
     Route: 048
     Dates: start: 20150209, end: 20150224
  5. AMLODIPINE [Concomitant]
     Active Substance: AMLODIPINE BESYLATE
  6. TASIGNA [Suspect]
     Active Substance: NILOTINIB
     Dosage: 600 MILLIGRAM DAILY;
     Route: 048
     Dates: start: 20150514, end: 20150610
  7. TAMOXIFEN [Suspect]
     Active Substance: TAMOXIFEN
     Indication: PRODUCT USED FOR UNKNOWN INDICATION
     Dosage: 20 MG, UNK
     Route: 065
     Dates: start: 201308
  8. TASIGNA [Suspect]
     Active Substance: NILOTINIB
     Dosage: 300 MILLIGRAM DAILY;
     Route: 048
     Dates: start: 20150316, end: 20150513
  9. BISOPROLOL [Concomitant]
     Active Substance: BISOPROLOL
     Indication: PRODUCT USED FOR UNKNOWN INDICATION
     Dosage: 5 MG, UNK
     Route: 065
  10. AMLODIPINE [Concomitant]
     Active Substance: AMLODIPINE BESYLATE
     Indication: PRODUCT USED FOR UNKNOWN INDICATION
     Dosage: 2.5 MG, UNK
     Route: 065
  11. FENISTIL?RETARD [Concomitant]
     Indication: PRODUCT USED FOR UNKNOWN INDICATION
     Dosage: 1 DOSAGE FORMS DAILY; 1 DF, QD
     Route: 065
     Dates: start: 201502, end: 201603

REACTIONS (2)
  - Rash [Not Recovered/Not Resolved]
  - Toxicity to various agents [Not Recovered/Not Resolved]

NARRATIVE: CASE EVENT DATE: 20150209
